FAERS Safety Report 5921164-4 (Version None)
Quarter: 2008Q4

REPORT INFORMATION
  Report Type: 
  Country: None (occurrence: None)
  Receive Date: 20081016
  Receipt Date: 20081008
  Transmission Date: 20090506
  Serious: Yes (Death, Hospitalization)
  Sender: FDA-Public Use
  Company Number: JP-ABBOTT-07P-087-0361787-00

PATIENT
  Sex: Male

DRUGS (10)
  1. LEUPROLIDE ACETATE [Suspect]
     Indication: PROSTATE CANCER STAGE IV
     Route: 058
     Dates: start: 20060427, end: 20061012
  2. ESTRAMUSTINE PHOSPHATE SODIUM [Suspect]
     Indication: PROSTATE CANCER STAGE IV
     Route: 048
     Dates: start: 20061126, end: 20061128
  3. ESTRAMUSTINE PHOSPHATE SODIUM [Suspect]
     Route: 048
     Dates: start: 20061203, end: 20061205
  4. DOCETAXEL [Suspect]
     Indication: PROSTATE CANCER STAGE IV
     Route: 041
     Dates: start: 20061127, end: 20061127
  5. DOCETAXEL [Suspect]
     Route: 041
     Dates: start: 20061204, end: 20061204
  6. BICALUTAMIDE [Concomitant]
     Indication: PROSTATE CANCER STAGE IV
     Route: 048
     Dates: start: 20060422, end: 20060830
  7. FLUTAMIDE [Concomitant]
     Indication: PROSTATE CANCER STAGE IV
     Route: 048
     Dates: start: 20060831, end: 20061012
  8. INSULIN INJECTION, BIPHASIC [Concomitant]
     Indication: DRUG USE FOR UNKNOWN INDICATION
     Route: 058
     Dates: start: 20040819
  9. GOSERELIN ACETATE [Concomitant]
     Indication: DRUG USE FOR UNKNOWN INDICATION
     Route: 058
     Dates: start: 20070405
  10. GOSERELIN ACETATE [Concomitant]
     Route: 058
     Dates: start: 20070426

REACTIONS (4)
  - DISSEMINATED INTRAVASCULAR COAGULATION [None]
  - INTERSTITIAL LUNG DISEASE [None]
  - PROSTATE CANCER [None]
  - URINARY TRACT INFECTION [None]
